FAERS Safety Report 4602943-2 (Version None)
Quarter: 2005Q1

REPORT INFORMATION
  Report Type: 
  Country: None (occurrence: None)
  Receive Date: 20050307
  Receipt Date: 20050221
  Transmission Date: 20050727
  Serious: Yes (Hospitalization)
  Sender: FDA-Public Use
  Company Number: 2004097436

PATIENT
  Age: 28 Year
  Sex: Male
  Weight: 95 kg

DRUGS (5)
  1. PREGABALIN (PREGABALIN) [Suspect]
     Indication: PARTIAL SEIZURES
     Dosage: 600 MG (300 MG, 2 IN 1 D), ORAL
     Route: 048
     Dates: start: 20031209, end: 20041129
  2. CARBAMAZEPINE [Concomitant]
  3. TIAGABINE HYDROCHLORIDE (TIAGABINE HYDROCHLORIDE) [Concomitant]
  4. ENALAPRIL MALEATE [Concomitant]
  5. TIANEPTINE (TIANEPTINE) [Concomitant]

REACTIONS (7)
  - BLOOD CREATINE PHOSPHOKINASE INCREASED [None]
  - HALLUCINATIONS, MIXED [None]
  - MANIA [None]
  - PARANOIA [None]
  - PSYCHOTIC DISORDER [None]
  - TREATMENT NONCOMPLIANCE [None]
  - VERTIGO [None]
